FAERS Safety Report 13395054 (Version 7)
Quarter: 2018Q3

REPORT INFORMATION
  Report Type: Report from Study
  Country: IT (occurrence: IT)
  Receive Date: 20170403
  Receipt Date: 20180717
  Transmission Date: 20181010
  Serious: Yes (Death, Life-Threatening, Hospitalization, Other)
  Sender: FDA-Public Use
  Company Number: IT-AMGEN-ITANI2017029825

PATIENT
  Age: 68 Year
  Sex: Male

DRUGS (14)
  1. EPOETIN ALFA [Concomitant]
     Active Substance: ERYTHROPOIETIN
     Dosage: 4000 UNK, QWK
     Route: 058
     Dates: start: 20160718, end: 20161109
  2. DEXAMETHASONE. [Concomitant]
     Active Substance: DEXAMETHASONE
     Indication: PLASMA CELL MYELOMA
     Dosage: 20 UNK, 2 TIMES/WK
     Route: 042
     Dates: start: 20160718, end: 20161116
  3. MONOKET [Concomitant]
     Active Substance: ISOSORBIDE MONONITRATE
     Dosage: UNK
  4. GANCICLOVIR. [Concomitant]
     Active Substance: GANCICLOVIR
     Indication: PNEUMONIA
  5. CARFILZOMIB [Suspect]
     Active Substance: CARFILZOMIB
     Indication: PLASMA CELL MYELOMA
     Dosage: 20 MG/M2, 2 TIMES/WK  (ON DAY 1, 2 [FIRST TWO DOSES OF FIRST CYCLE])
     Route: 042
     Dates: start: 20160718, end: 2016
  6. CARFILZOMIB [Suspect]
     Active Substance: CARFILZOMIB
     Dosage: 27 MG/M2, 2 TIMES/WK [ON DAY 1, 2, 8, 9, 15, 16 (EVERY 28 DAYS)]
     Route: 042
     Dates: start: 2016, end: 20161116
  7. GANCICLOVIR. [Concomitant]
     Active Substance: GANCICLOVIR
     Indication: CYTOMEGALOVIRUS INFECTION
     Dosage: 40000 UNK, QWK; 250 MG, Q2
     Route: 058
     Dates: start: 20160718, end: 20170103
  8. REVLIMID [Concomitant]
     Active Substance: LENALIDOMIDE
     Indication: PLASMA CELL MYELOMA
     Dosage: 15 MUG, QD
     Route: 048
     Dates: start: 20160718, end: 2016
  9. DEXAMETHASONE. [Concomitant]
     Active Substance: DEXAMETHASONE
     Dosage: 40 MG, ON DAY 1, 8, 15 AND 22
  10. URBASON [Concomitant]
     Active Substance: METHYLPREDNISOLONE
     Dosage: UNK
     Route: 042
  11. KANRENOL [Concomitant]
     Active Substance: CANRENOATE POTASSIUM
     Dosage: UNK
  12. DILATREND [Concomitant]
     Active Substance: CARVEDILOL
     Dosage: UNK
  13. EPREX [Concomitant]
     Active Substance: ERYTHROPOIETIN
     Dosage: UNK
     Route: 058
  14. REVLIMID [Concomitant]
     Active Substance: LENALIDOMIDE
     Dosage: 25 MG, ON DAY 1 TO DAY 21
     Route: 048
     Dates: start: 2016, end: 20161004

REACTIONS (2)
  - Acute myocardial infarction [Recovered/Resolved]
  - Pneumonia [Fatal]

NARRATIVE: CASE EVENT DATE: 20161119
